FAERS Safety Report 24762954 (Version 2)
Quarter: 2025Q2

REPORT INFORMATION
  Report Type: Spontaneous
  Country: US (occurrence: US)
  Receive Date: 20241222
  Receipt Date: 20250507
  Transmission Date: 20250717
  Serious: Yes (Hospitalization)
  Sender: JOHNSON AND JOHNSON
  Company Number: US-JNJFOC-20241220163

PATIENT
  Age: 60 Year
  Sex: Male

DRUGS (2)
  1. CARVYKTI [Suspect]
     Active Substance: CILTACABTAGENE AUTOLEUCEL
     Indication: Plasma cell myeloma
     Route: 065
     Dates: start: 202311
  2. DEXAMETHASONE [Suspect]
     Active Substance: DEXAMETHASONE
     Indication: Plasma cell myeloma
     Route: 065

REACTIONS (3)
  - Acute kidney injury [Recovering/Resolving]
  - Psychotic disorder [Not Recovered/Not Resolved]
  - Neurotoxicity [Not Recovered/Not Resolved]

NARRATIVE: CASE EVENT DATE: 20241201
